FAERS Safety Report 19275195 (Version 1)
Quarter: 2021Q2

REPORT INFORMATION
  Report Type: Spontaneous
  Country: US (occurrence: US)
  Receive Date: 20210519
  Receipt Date: 20210519
  Transmission Date: 20210717
  Serious: No
  Sender: FDA-Public Use
  Company Number: US-TEVA-2021-US-1914264

PATIENT
  Sex: Female
  Weight: 90.35 kg

DRUGS (1)
  1. ENALAPRIL MALEATE TABLETS USP, 2.5MG, 5MG, 10MG, 20MG [Suspect]
     Active Substance: ENALAPRIL MALEATE
     Route: 065

REACTIONS (1)
  - Swelling face [Unknown]
